FAERS Safety Report 12110505 (Version 2)
Quarter: 2016Q1

REPORT INFORMATION
  Report Type: Spontaneous
  Country: BR (occurrence: BR)
  Receive Date: 20160224
  Receipt Date: 20160302
  Transmission Date: 20160526
  Serious: Yes (Hospitalization)
  Sender: FDA-Public Use
  Company Number: BR-PFIZER INC-2016104116

PATIENT
  Sex: Male

DRUGS (1)
  1. CELEBRA [Suspect]
     Active Substance: CELECOXIB

REACTIONS (4)
  - Hernia pain [Unknown]
  - Feeling abnormal [Unknown]
  - Vomiting [Unknown]
  - Nausea [Unknown]
